FAERS Safety Report 5564293-X (Version None)
Quarter: 2007Q4

REPORT INFORMATION
  Report Type: 
  Country: None (occurrence: None)
  Receive Date: 20071218
  Receipt Date: 20071205
  Transmission Date: 20080405
  Serious: Yes (Hospitalization)
  Sender: FDA-Public Use
  Company Number: PHBS2007IT20866

PATIENT
  Age: 34 Year
  Sex: Male

DRUGS (2)
  1. TEGRETOL [Suspect]
     Indication: PARTIAL SEIZURES
     Dosage: 1200 MG/DAY
     Route: 048
     Dates: start: 20061203
  2. THEOREM [Suspect]

REACTIONS (1)
  - SURGERY [None]
